FAERS Safety Report 8593042 (Version 2)
Quarter: 2012Q4

REPORT INFORMATION
  Report Type: 
  Country: US (occurrence: US)
  Receive Date: 20120604
  Receipt Date: 20120927
  Transmission Date: 20130627
  Serious: No
  Sender: FDA-Public Use
  Company Number: US-BIOGENIDEC-2012BI018806

PATIENT
  Age: 55 Year
  Sex: Female

DRUGS (3)
  1. TYSABRI [Suspect]
     Indication: MULTIPLE SCLEROSIS
     Route: 042
     Dates: start: 20110920
  2. AMBIEN [Concomitant]
  3. LIPITOR [Concomitant]

REACTIONS (11)
  - Joint swelling [Recovered/Resolved]
  - Oedema peripheral [Recovered/Resolved]
  - Somnolence [Not Recovered/Not Resolved]
  - Gait disturbance [Unknown]
  - Drug hypersensitivity [Recovered/Resolved]
  - Muscle disorder [Recovered/Resolved]
  - Back disorder [Recovered/Resolved with Sequelae]
  - Spinal disorder [Unknown]
  - Rash [Not Recovered/Not Resolved]
  - Fatigue [Recovered/Resolved]
  - Asthenia [Not Recovered/Not Resolved]
